FAERS Safety Report 12613039 (Version 1)
Quarter: 2016Q3

REPORT INFORMATION
  Report Type: Spontaneous
  Country: US (occurrence: US)
  Receive Date: 20160802
  Receipt Date: 20160802
  Transmission Date: 20161109
  Serious: No
  Sender: FDA-Public Use
  Company Number: US-PAR PHARMACEUTICAL, INC-2015SCPR014276

PATIENT

DRUGS (4)
  1. CALCITONIN [Suspect]
     Active Substance: CALCITONIN
     Indication: OSTEOPENIA
     Dosage: 1 SPR, OD, IN ALTERNATING NOSTRILS
     Route: 045
     Dates: start: 2015, end: 20150826
  2. CALCITONIN [Suspect]
     Active Substance: CALCITONIN
     Dosage: 1 SPR, OD, IN ALTERNATING NOSTRILS
     Route: 045
     Dates: start: 20120213, end: 20150826
  3. CALCITONIN [Suspect]
     Active Substance: CALCITONIN
     Dosage: 1 SPR, OD
     Route: 045
     Dates: start: 20150828
  4. THYROID PREPARATIONS [Concomitant]
     Active Substance: UNSPECIFIED INGREDIENT
     Indication: PRODUCT USED FOR UNKNOWN INDICATION
     Dosage: UNK, UNKNOWN
     Route: 065

REACTIONS (2)
  - Throat irritation [Recovered/Resolved]
  - Sneezing [Recovered/Resolved]

NARRATIVE: CASE EVENT DATE: 2015
